FAERS Safety Report 18694662 (Version 1)
Quarter: 2021Q1

REPORT INFORMATION
  Report Type: Spontaneous
  Country: US (occurrence: US)
  Receive Date: 20210104
  Receipt Date: 20210104
  Transmission Date: 20210419
  Serious: No
  Sender: FDA-Public Use
  Company Number: US-TARO-2020TAR00738

PATIENT
  Sex: Male

DRUGS (1)
  1. HYDROCORTISONE CREAM USP 2.5% [Suspect]
     Active Substance: HYDROCORTISONE
     Indication: ANAL HAEMORRHAGE
     Dosage: UNK
     Route: 065

REACTIONS (2)
  - Drug ineffective [Unknown]
  - Product quality issue [Unknown]
